FAERS Safety Report 6370619-X (Version None)
Quarter: 2009Q3

REPORT INFORMATION
  Report Type: 
  Country: None (occurrence: None)
  Receive Date: 20090923
  Receipt Date: 20090909
  Transmission Date: 20100115
  Serious: Yes (Other)
  Sender: FDA-Public Use
  Company Number: US-ROCHE-655790

PATIENT
  Sex: Male

DRUGS (2)
  1. PEGASYS [Suspect]
     Indication: HEPATITIS C
     Dosage: COMPLETED 40 WEEKS OF THERAPY
     Route: 065
     Dates: start: 20081026, end: 20090802
  2. RIBAVIRIN [Suspect]
     Indication: HEPATITIS C
     Dosage: COMPLETED 40 WEEKS OF THERAPY
     Route: 065
     Dates: start: 20081026, end: 20090802

REACTIONS (2)
  - HEPATIC ENZYME INCREASED [None]
  - LEUKAEMIA [None]
